FAERS Safety Report 7032092-8 (Version None)
Quarter: 2010Q4

REPORT INFORMATION
  Report Type: 
  Country: None (occurrence: None)
  Receive Date: 20101007
  Receipt Date: 20100615
  Transmission Date: 20110411
  Serious: No
  Sender: FDA-Public Use
  Company Number: US-KINGPHARMUSA00001-K201000762

PATIENT
  Sex: Female

DRUGS (2)
  1. SONATA [Suspect]
     Indication: PAIN
     Dosage: ONE HALF CAPSULE, 3-4 TIMES DAILY
     Route: 048
     Dates: start: 20040101
  2. SONATA [Suspect]
     Indication: FIBROMYALGIA

REACTIONS (5)
  - DYSGEUSIA [None]
  - GLOSSODYNIA [None]
  - TOOTH DISORDER [None]
  - TOOTH EROSION [None]
  - WRONG TECHNIQUE IN DRUG USAGE PROCESS [None]
